FAERS Safety Report 6129004-8 (Version None)
Quarter: 2009Q1

REPORT INFORMATION
  Report Type: 
  Country: None (occurrence: None)
  Receive Date: 20090324
  Receipt Date: 20090318
  Transmission Date: 20090719
  Serious: Yes (Death, Other)
  Sender: FDA-Public Use
  Company Number: PHHY2009JP09946

PATIENT
  Age: 49 Year
  Sex: Male

DRUGS (3)
  1. CYCLOSPORINE [Suspect]
     Indication: WEGENER'S GRANULOMATOSIS
     Dosage: UNK
     Dates: start: 20040101
  2. PREDNISOLONE [Suspect]
     Indication: WEGENER'S GRANULOMATOSIS
  3. CYCLOPHOSPHAMIDE [Suspect]
     Indication: WEGENER'S GRANULOMATOSIS

REACTIONS (2)
  - ASPERGILLOSIS [None]
  - DEATH [None]
